FAERS Safety Report 15055251 (Version 1)
Quarter: 2018Q2

REPORT INFORMATION
  Report Type: Spontaneous
  Country: FR (occurrence: FR)
  Receive Date: 20180622
  Receipt Date: 20180622
  Transmission Date: 20180711
  Serious: Yes (Death)
  Sender: FDA-Public Use
  Company Number: FR-BAUSCH-BL-2018-017234

PATIENT
  Age: 72 Year
  Sex: Male
  Weight: 70 kg

DRUGS (8)
  1. ATARAX [Concomitant]
     Active Substance: HYDROXYZINE HYDROCHLORIDE
     Indication: PRODUCT USED FOR UNKNOWN INDICATION
     Dosage: 25 MG FILM-COATED TABLETS
     Route: 048
  2. AMLOR [Concomitant]
     Active Substance: AMLODIPINE BESYLATE
     Indication: HYPERTENSION
     Dosage: HARD CAPSULE
     Route: 048
  3. DIFFU K [Concomitant]
     Active Substance: POTASSIUM CHLORIDE
     Indication: HYPOKALAEMIA
     Route: 048
  4. METFORMINE [Suspect]
     Active Substance: METFORMIN HYDROCHLORIDE
     Indication: TYPE 2 DIABETES MELLITUS
     Route: 048
  5. CETIRIZINE (DIHYDROCHLORIDE) [Concomitant]
     Indication: HYPERSENSITIVITY
     Route: 048
  6. ACIDE FOLIQUE [Concomitant]
     Active Substance: FOLIC ACID
     Indication: ANAEMIA PROPHYLAXIS
     Route: 048
  7. AVODART [Concomitant]
     Active Substance: DUTASTERIDE
     Indication: BENIGN PROSTATIC HYPERPLASIA
     Dosage: CAPSULE MOLLE
     Route: 048
  8. PREVISCAN (FLUINDIONE) [Concomitant]
     Active Substance: FLUINDIONE
     Indication: MYOCARDIAL ISCHAEMIA
     Dosage: SCORED TABLET
     Route: 048

REACTIONS (3)
  - Lactic acidosis [Fatal]
  - Drug level increased [Fatal]
  - Accidental overdose [Fatal]

NARRATIVE: CASE EVENT DATE: 20171231
